FAERS Safety Report 7864608-3 (Version None)
Quarter: 2011Q4

REPORT INFORMATION
  Report Type: 
  Country: None (occurrence: None)
  Receive Date: 20111028
  Receipt Date: 20111021
  Transmission Date: 20120403
  Serious: Yes (Death, Other)
  Sender: FDA-Public Use
  Company Number: ES-CUBIST-2011S1000705

PATIENT
  Age: 78 Year
  Sex: Male

DRUGS (1)
  1. CUBICIN [Suspect]
     Indication: SEPSIS
     Route: 065
     Dates: start: 20110402, end: 20110428

REACTIONS (2)
  - EOSINOPHILIC PNEUMONIA [None]
  - MYOCARDIAL INFARCTION [None]
